FAERS Safety Report 7227677-X (Version None)
Quarter: 2011Q1

REPORT INFORMATION
  Report Type: 
  Country: None (occurrence: None)
  Receive Date: 20110114
  Receipt Date: 20110111
  Transmission Date: 20110831
  Serious: No
  Sender: FDA-Public Use
  Company Number: US-PFIZER INC-2011007824

PATIENT

DRUGS (1)
  1. SUTENT [Suspect]

REACTIONS (2)
  - NAIL DISORDER [None]
  - NAIL DISCOLOURATION [None]
